FAERS Safety Report 8233025-9 (Version None)
Quarter: 2012Q1

REPORT INFORMATION
  Report Type: 
  Country: None (occurrence: None)
  Receive Date: 20120326
  Receipt Date: 20120315
  Transmission Date: 20120608
  Serious: Yes (Other)
  Sender: FDA-Public Use
  Company Number: AU-BIOGENIDEC-2012BI003395

PATIENT
  Age: 57 Year
  Sex: Female

DRUGS (4)
  1. MICARDIS [Concomitant]
  2. AVONEX [Suspect]
     Indication: MULTIPLE SCLEROSIS
     Route: 030
  3. CRESTOR [Concomitant]
  4. SOMAC (PANTOPRAZOLE) [Concomitant]

REACTIONS (3)
  - COELIAC DISEASE [None]
  - HEPATIC STEATOSIS [None]
  - BREAST CANCER [None]
